FAERS Safety Report 6189888-4 (Version None)
Quarter: 2009Q2

REPORT INFORMATION
  Report Type: 
  Country: None (occurrence: None)
  Receive Date: 20090514
  Receipt Date: 20090504
  Transmission Date: 20091009
  Serious: Yes (Hospitalization, Other)
  Sender: FDA-Public Use
  Company Number: US-AMGEN-QUU336451

PATIENT
  Sex: Female
  Weight: 70.4 kg

DRUGS (2)
  1. ENBREL [Suspect]
     Indication: PSORIASIS
     Route: 058
     Dates: start: 20040901
  2. VITAMIN TAB [Concomitant]

REACTIONS (1)
  - PREMATURE LABOUR [None]
